FAERS Safety Report 9659256 (Version 2)
Quarter: 2013Q4

REPORT INFORMATION
  Report Type: Report from Study
  Country: CO (occurrence: CO)
  Receive Date: 20131031
  Receipt Date: 20131107
  Transmission Date: 20140711
  Serious: Yes (Hospitalization, Other)
  Sender: FDA-Public Use
  Company Number: CO-ROCHE-1297662

PATIENT
  Age: 77 Year
  Sex: Female

DRUGS (1)
  1. XOLAIR [Suspect]
     Indication: ASTHMA
     Route: 058
     Dates: start: 2012

REACTIONS (4)
  - Arrhythmia [Recovering/Resolving]
  - Accident [Unknown]
  - Fall [Unknown]
  - Foot fracture [Recovering/Resolving]
